FAERS Safety Report 5075443-6 (Version None)
Quarter: 2006Q3

REPORT INFORMATION
  Report Type: 
  Country: None (occurrence: None)
  Receive Date: 20060807
  Receipt Date: 20060807
  Transmission Date: 20061208
  Serious: Yes (Other)
  Sender: FDA-Public Use
  Company Number: None

PATIENT
  Age: 63 Year
  Sex: Female
  Weight: 81.1939 kg

DRUGS (2)
  1. LEVAQUIN [Suspect]
     Dosage: 500 MG ONCE DAY MOUTH
     Route: 048
     Dates: start: 20060213, end: 20060214
  2. CIPRO [Suspect]
     Indication: URINARY TRACT INFECTION
     Dosage: 500 MG 2 TIMES DAY MOUTH
     Route: 048
     Dates: start: 20060215, end: 20060221

REACTIONS (9)
  - ASTHENIA [None]
  - BLOOD GLUCOSE DECREASED [None]
  - BURNING SENSATION [None]
  - DIZZINESS [None]
  - DYSPEPSIA [None]
  - EMOTIONAL DISTRESS [None]
  - FEELING ABNORMAL [None]
  - PAIN [None]
  - URINARY TRACT INFECTION [None]
